FAERS Safety Report 6115984-3 (Version None)
Quarter: 2009Q1

REPORT INFORMATION
  Report Type: 
  Country: None (occurrence: None)
  Receive Date: 20090314
  Receipt Date: 20090219
  Transmission Date: 20090719
  Serious: No
  Sender: FDA-Public Use
  Company Number: US-ABBOTT-08P-163-0484431-00

PATIENT
  Sex: Female

DRUGS (4)
  1. HUMIRA [Suspect]
     Indication: PSORIASIS
     Route: 058
     Dates: start: 20080501
  2. HUMIRA [Suspect]
     Indication: PSORIATIC ARTHROPATHY
  3. WELLBUTRIN [Concomitant]
     Indication: DRUG USE FOR UNKNOWN INDICATION
  4. NAPROXSYN [Concomitant]
     Indication: ARTHRITIS

REACTIONS (1)
  - INJECTION SITE IRRITATION [None]
